FAERS Safety Report 6902918-4 (Version None)
Quarter: 2010Q3

REPORT INFORMATION
  Report Type: 
  Country: None (occurrence: None)
  Receive Date: 20100803
  Receipt Date: 20080604
  Transmission Date: 20110219
  Serious: No
  Sender: FDA-Public Use
  Company Number: US-PFIZER INC-2008026436

PATIENT
  Sex: Female

DRUGS (2)
  1. LYRICA [Suspect]
     Indication: NERVE INJURY
     Route: 048
     Dates: start: 20080315
  2. LYRICA [Suspect]
     Indication: NEURALGIA

REACTIONS (4)
  - DIZZINESS [None]
  - HYPERSENSITIVITY [None]
  - PRURITUS [None]
  - TREMOR [None]
